FAERS Safety Report 9802237 (Version 3)
Quarter: 2014Q3

REPORT INFORMATION
  Report Type: Spontaneous
  Country: US (occurrence: US)
  Receive Date: 20140107
  Receipt Date: 20140829
  Transmission Date: 20150326
  Serious: Yes (Hospitalization, Other)
  Sender: FDA-Public Use
  Company Number: US-009507513-1401USA002003

PATIENT
  Sex: Female

DRUGS (1)
  1. NUVARING [Suspect]
     Active Substance: ETHINYL ESTRADIOL\ETONOGESTREL
     Indication: CONTRACEPTION
     Dosage: UNK
     Route: 067
     Dates: start: 201103, end: 20110415

REACTIONS (16)
  - Deep vein thrombosis [Unknown]
  - Pulmonary embolism [Unknown]
  - Joint injury [Unknown]
  - Chest pain [Unknown]
  - Fracture treatment [Unknown]
  - Muscle spasms [Unknown]
  - Eczema [Unknown]
  - Tibia fracture [Unknown]
  - Treatment noncompliance [Unknown]
  - Chills [Unknown]
  - Dizziness [Unknown]
  - Nausea [Unknown]
  - Abdominal pain [Unknown]
  - Pulmonary embolism [Unknown]
  - Hyperhidrosis [Unknown]
  - Headache [Unknown]

NARRATIVE: CASE EVENT DATE: 20110402
